FAERS Safety Report 8549592-1 (Version None)
Quarter: 2012Q3

REPORT INFORMATION
  Report Type: 
  Country: None (occurrence: None)
  Receive Date: 20120730
  Receipt Date: 20120725
  Transmission Date: 20120928
  Serious: Yes (Other)
  Sender: FDA-Public Use
  Company Number: US-ABBOTT-12P-163-0958698-00

PATIENT
  Sex: Female
  Weight: 53.118 kg

DRUGS (11)
  1. VITAMIN D [Concomitant]
     Indication: OSTEOPOROSIS
     Route: 048
     Dates: start: 20120503, end: 20120604
  2. IMODIUM [Concomitant]
     Indication: CROHN'S DISEASE
     Route: 048
     Dates: start: 20120503, end: 20120528
  3. RESPBERRY TEA [Concomitant]
     Indication: PRODUCT USED FOR UNKNOWN INDICATION
     Route: 048
     Dates: start: 20120528, end: 20120604
  4. CAFFEINE [Concomitant]
     Indication: PRODUCT USED FOR UNKNOWN INDICATION
     Dosage: SODA 1.5 SERVINGS PER WEEK
     Route: 048
     Dates: start: 20120503, end: 20120604
  5. SEROQUEL [Concomitant]
     Indication: SLEEP DISORDER
     Route: 048
     Dates: start: 20120503, end: 20120528
  6. HUMIRA [Suspect]
     Indication: CROHN'S DISEASE
     Dates: start: 20120503, end: 20120604
  7. MULTI-VITAMINS [Concomitant]
     Indication: PRODUCT USED FOR UNKNOWN INDICATION
     Route: 048
     Dates: start: 20120503, end: 20120604
  8. CLONAZEPAM [Concomitant]
     Indication: INSOMNIA
     Route: 048
     Dates: start: 20120503, end: 20120528
  9. CALCIUM [Concomitant]
     Indication: ARTHRITIS
     Route: 048
     Dates: start: 20120503, end: 20120604
  10. VITAMIN B-12 [Concomitant]
     Indication: VITAMIN B12 DECREASED
     Route: 050
     Dates: start: 20120503, end: 20120604
  11. BLACK TEA [Concomitant]
     Indication: PRODUCT USED FOR UNKNOWN INDICATION
     Route: 048
     Dates: start: 20120503, end: 20120528

REACTIONS (9)
  - ABORTION SPONTANEOUS [None]
  - RESPIRATORY TRACT INFECTION [None]
  - HEADACHE [None]
  - OSTEOPOROSIS [None]
  - INSOMNIA [None]
  - VITAMIN B12 DECREASED [None]
  - ARTHRITIS [None]
  - VAGINAL HAEMORRHAGE [None]
  - CROHN'S DISEASE [None]
